FAERS Safety Report 24392844 (Version 1)
Quarter: 2024Q4

REPORT INFORMATION
  Report Type: Spontaneous
  Country: US (occurrence: None)
  Receive Date: 20241003
  Receipt Date: 20241003
  Transmission Date: 20250115
  Serious: Yes (Hospitalization)
  Sender: Public
  Company Number: None

PATIENT
  Sex: Female

DRUGS (2)
  1. TEZSPIRE [Suspect]
     Active Substance: TEZEPELUMAB-EKKO
     Indication: Asthma
     Route: 058
     Dates: start: 20231031
  2. BREZTRI AERO AER SPHERE [Concomitant]

REACTIONS (9)
  - Asthma [None]
  - Quality of life decreased [None]
  - Pyrexia [None]
  - Infection [None]
  - Nonspecific reaction [None]
  - Back pain [None]
  - Fatigue [None]
  - Headache [None]
  - Arthralgia [None]
